FAERS Safety Report 23291172 (Version 2)
Quarter: 2023Q4

REPORT INFORMATION
  Report Type: Other
  Country: US (occurrence: None)
  Receive Date: 20231213
  Receipt Date: 20231225
  Transmission Date: 20240109
  Serious: Yes (Other)
  Sender: FDA-Public Use
  Company Number: US-ROCHE-3362412

PATIENT
  Age: 66 Year
  Sex: Male

DRUGS (1)
  1. OCREVUS [Suspect]
     Active Substance: OCRELIZUMAB
     Indication: Secondary progressive multiple sclerosis
     Dosage: THEN 600 MG ONCE 6 MONTHS
     Route: 042
     Dates: start: 20210210

REACTIONS (10)
  - Hemiparesis [Not Recovered/Not Resolved]
  - Fall [Unknown]
  - Mobility decreased [Not Recovered/Not Resolved]
  - Pain [Not Recovered/Not Resolved]
  - Ligament sprain [Not Recovered/Not Resolved]
  - Fatigue [Not Recovered/Not Resolved]
  - Memory impairment [Not Recovered/Not Resolved]
  - Clumsiness [Not Recovered/Not Resolved]
  - Hypoaesthesia [Not Recovered/Not Resolved]
  - Constipation [Unknown]

NARRATIVE: CASE EVENT DATE: 20230101
